FAERS Safety Report 7321703-5 (Version None)
Quarter: 2011Q1

REPORT INFORMATION
  Report Type: 
  Country: None (occurrence: None)
  Receive Date: 20110228
  Receipt Date: 20100707
  Transmission Date: 20110831
  Serious: No
  Sender: FDA-Public Use
  Company Number: US-PFIZER INC-2010085360

PATIENT
  Age: 46 Year
  Sex: Male

DRUGS (2)
  1. CYMBALTA [Suspect]
     Dosage: 30 MG, 2X/DAY
  2. GEODON [Suspect]
     Dosage: 20 MG, 1X/DAY

REACTIONS (1)
  - ERECTILE DYSFUNCTION [None]
